FAERS Safety Report 24137815 (Version 1)
Quarter: 2024Q3

REPORT INFORMATION
  Report Type: Spontaneous
  Country: US (occurrence: US)
  Receive Date: 20240725
  Receipt Date: 20240725
  Transmission Date: 20241017
  Serious: Yes (Other)
  Sender: BOEHRINGER INGELHEIM
  Company Number: US-BoehringerIngelheim-2024-BI-041806

PATIENT

DRUGS (1)
  1. JARDIANCE [Suspect]
     Active Substance: EMPAGLIFLOZIN
     Indication: Type 1 diabetes mellitus

REACTIONS (4)
  - Euglycaemic diabetic ketoacidosis [Unknown]
  - Cardiac failure [Unknown]
  - Intentional product use issue [Unknown]
  - Proteinuria [Unknown]
